FAERS Safety Report 21549207 (Version 2)
Quarter: 2022Q4

REPORT INFORMATION
  Report Type: Spontaneous
  Country: US (occurrence: US)
  Receive Date: 20221103
  Receipt Date: 20221107
  Transmission Date: 20230113
  Serious: No
  Sender: FDA-Public Use
  Company Number: US-PFIZER INC-PV202200094396

PATIENT

DRUGS (3)
  1. GEMCITABINE HYDROCHLORIDE [Suspect]
     Active Substance: GEMCITABINE HYDROCHLORIDE
     Dosage: UNK (6 ROUNDS OF CHEMO - CISPLATIN/ GEMCITABINE)
  2. GEMCITABINE HYDROCHLORIDE [Suspect]
     Active Substance: GEMCITABINE HYDROCHLORIDE
     Dosage: UNK (6TH CYCLE OF CHEMOTHERAPY PLUS 2 CYCLES OF GEMCITABINE)
  3. CISPLATIN [Suspect]
     Active Substance: CISPLATIN
     Indication: Ovarian cancer stage III
     Dosage: UNK (6 ROUNDS OF CHEMO - CISPLATIN/ GEMCITABINE)

REACTIONS (2)
  - Off label use [Unknown]
  - Product use issue [Unknown]
